FAERS Safety Report 9776633 (Version 2)
Quarter: 2013Q4

REPORT INFORMATION
  Report Type: Spontaneous
  Country: US (occurrence: US)
  Receive Date: 20131220
  Receipt Date: 20131231
  Transmission Date: 20140711
  Serious: Yes (Other)
  Sender: FDA-Public Use
  Company Number: US-RB-061691-13

PATIENT
  Age: 33 Year
  Sex: Male

DRUGS (6)
  1. SUBOXONE TABLET [Suspect]
     Indication: DRUG DEPENDENCE
     Route: 060
     Dates: start: 2009, end: 2011
  2. SUBOXONE FILM [Suspect]
     Indication: DRUG DEPENDENCE
     Dosage: SUBOXONE FILM.
     Route: 060
     Dates: start: 2011
  3. SUBOXONE FILM [Suspect]
     Dosage: SUBOXONE FILM; CUTTING FILM TO ACHIEVE 12 MG.
     Route: 060
  4. ALCOHOL [Suspect]
     Indication: PRODUCT USED FOR UNKNOWN INDICATION
     Dosage: UNKNOWN DOSING DETAILS; ONE NIGHT OF HEAVY DRINKING.
     Route: 065
  5. LISINOPRIL [Concomitant]
     Indication: HYPERTENSION
     Dosage: UNKNOWN DAILY DOSING.
     Route: 048
  6. WELLBUTRIN [Concomitant]
     Indication: DEPRESSION
     Dosage: UNKNOWN DAILY DOSING.
     Route: 048

REACTIONS (6)
  - Alcohol abuse [Recovered/Resolved]
  - Cardiac disorder [Recovered/Resolved]
  - Atrial fibrillation [Recovered/Resolved]
  - Panic attack [Recovered/Resolved]
  - Palpitations [Recovered/Resolved]
  - Wrong technique in drug usage process [Unknown]
